FAERS Safety Report 8543829-0 (Version None)
Quarter: 2012Q3

REPORT INFORMATION
  Report Type: 
  Country: None (occurrence: None)
  Receive Date: 20120727
  Receipt Date: 20120723
  Transmission Date: 20120928
  Serious: Yes (Hospitalization)
  Sender: FDA-Public Use
  Company Number: FR-PFIZER INC-2012176945

PATIENT
  Age: 61 Year
  Sex: Male

DRUGS (9)
  1. CYTARABINE [Suspect]
     Indication: PROSTATIC ADENOMA
     Dosage: 1000 MG/M2, 2X/DAY
     Route: 042
     Dates: start: 20120512, end: 20120515
  2. FLUDARABINE PHOSPHATE [Suspect]
     Indication: PROSTATIC ADENOMA
     Dosage: 30 MG/M2, 1X/DAY
     Route: 042
     Dates: start: 20120512, end: 20120515
  3. THYMOGLOBULIN [Suspect]
     Dosage: 160 MG, UNK
     Route: 042
     Dates: start: 20120523, end: 20120523
  4. THYMOGLOBULIN [Suspect]
     Dosage: 200 MG, UNK
     Route: 042
     Dates: start: 20120524, end: 20120524
  5. THYMOGLOBULIN [Suspect]
     Indication: PROSTATIC ADENOMA
     Dosage: 40 MG, UNK
     Route: 042
     Dates: start: 20120522, end: 20120522
  6. CYCLOPHOSPHAMIDE [Suspect]
     Indication: PROSTATIC ADENOMA
     Dosage: 60 MG/KG, SINGLE
     Route: 042
     Dates: start: 20120519, end: 20120519
  7. GRANOCYTE [Concomitant]
     Indication: PROSTATIC ADENOMA
     Dosage: 263 UG, 1X/DAY
     Route: 042
     Dates: start: 20120512, end: 20120515
  8. AMSALYO [Suspect]
     Indication: PROSTATIC ADENOMA
     Dosage: 100 MG/M2, 1X/DAY
     Route: 042
     Dates: start: 20120512, end: 20120515
  9. BUSULFAN [Suspect]
     Indication: PROSTATIC ADENOMA
     Dosage: 64 MG, 4X/DAY
     Route: 042
     Dates: start: 20120520, end: 20120521

REACTIONS (1)
  - VENOOCCLUSIVE DISEASE [None]
